FAERS Safety Report 5415152-4 (Version None)
Quarter: 2007Q3

REPORT INFORMATION
  Report Type: 
  Country: None (occurrence: None)
  Receive Date: 20070815
  Receipt Date: 20070702
  Transmission Date: 20080115
  Serious: No
  Sender: FDA-Public Use
  Company Number: A0661716A

PATIENT
  Sex: Female

DRUGS (2)
  1. COREG CR [Suspect]
     Indication: HYPERTENSION
     Dosage: 25MG TWICE PER DAY
     Route: 048
     Dates: start: 20070601
  2. ZETIA [Concomitant]

REACTIONS (6)
  - DRY EYE [None]
  - EYE IRRITATION [None]
  - INAPPROPRIATE SCHEDULE OF DRUG ADMINISTRATION [None]
  - MUSCULOSKELETAL STIFFNESS [None]
  - MYALGIA [None]
  - VISION BLURRED [None]
